FAERS Safety Report 9977257 (Version 1)
Quarter: 2014Q1

REPORT INFORMATION
  Report Type: Report from Study
  Country: US (occurrence: US)
  Receive Date: 20140306
  Receipt Date: 20140306
  Transmission Date: 20141002
  Serious: No
  Sender: FDA-Public Use
  Company Number: US-ABBVIE-13P-163-1168601-00

PATIENT
  Age: 47 Year
  Sex: Female

DRUGS (7)
  1. HUMIRA [Suspect]
     Indication: CROHN^S DISEASE
     Dates: start: 20130620
  2. AZATHIOPRINE [Concomitant]
     Indication: CROHN^S DISEASE
  3. FLUOXETINE [Concomitant]
     Indication: DEPRESSION
  4. FLUOXETINE [Concomitant]
     Indication: ANXIETY
  5. VITAMIN B12 [Concomitant]
     Indication: ANAEMIA
  6. IRON [Concomitant]
     Indication: ANAEMIA
     Dosage: EVERY THREE TO FOUR WEEKS
  7. TRIAMTERENE [Concomitant]
     Indication: OEDEMA

REACTIONS (3)
  - Incorrect dose administered [Recovered/Resolved]
  - Injection site extravasation [Recovered/Resolved]
  - Injection site haemorrhage [Recovered/Resolved]
